FAERS Safety Report 6584774-X (Version None)
Quarter: 2010Q1

REPORT INFORMATION
  Report Type: 
  Country: None (occurrence: None)
  Receive Date: 20100217
  Receipt Date: 20100208
  Transmission Date: 20100710
  Serious: Yes (Hospitalization)
  Sender: FDA-Public Use
  Company Number: US-CUBIST-2010S1000073

PATIENT
  Age: 82 Year
  Sex: Male

DRUGS (4)
  1. CUBICIN [Suspect]
     Indication: STREPTOCOCCAL INFECTION
  2. CUBICIN [Suspect]
     Indication: DEVICE RELATED INFECTION
  3. VANCOMYCIN [Concomitant]
     Indication: PROPHYLAXIS
  4. ERTAPENEM [Concomitant]
     Indication: PROPHYLAXIS

REACTIONS (1)
  - EOSINOPHILIC PNEUMONIA [None]
